FAERS Safety Report 4898944-X (Version None)
Quarter: 2006Q1

REPORT INFORMATION
  Report Type: 
  Country: None (occurrence: None)
  Receive Date: 20060127
  Receipt Date: 20060119
  Transmission Date: 20060701
  Serious: Yes (Disabling)
  Sender: FDA-Public Use
  Company Number: 2006010994

PATIENT
  Sex: Male

DRUGS (4)
  1. GEODON [Suspect]
     Indication: ILL-DEFINED DISORDER
  2. ZOLOFT [Suspect]
     Indication: ILL-DEFINED DISORDER
  3. ALPRAZOLAM [Suspect]
     Indication: ILL-DEFINED DISORDER
  4. WELLBUTRIN [Concomitant]

REACTIONS (1)
  - BIPOLAR DISORDER [None]
